FAERS Safety Report 17771377 (Version 1)
Quarter: 2020Q2

REPORT INFORMATION
  Report Type: Spontaneous
  Country: IN (occurrence: IN)
  Receive Date: 20200512
  Receipt Date: 20200512
  Transmission Date: 20200714
  Serious: Yes (Death, Hospitalization, Other)
  Sender: FDA-Public Use
  Company Number: IN-SA-2020SA120492

PATIENT
  Age: 1 Year
  Sex: Female

DRUGS (2)
  1. MYOZYME [Suspect]
     Active Substance: ALGLUCOSIDASE ALFA
     Indication: GLYCOGEN STORAGE DISEASE TYPE II
     Dosage: 20 MG/KG, QOW
     Route: 042
     Dates: start: 201909
  2. METHOTREXATE. [Concomitant]
     Active Substance: METHOTREXATE
     Indication: IMMUNOMODULATORY THERAPY

REACTIONS (7)
  - Lower respiratory tract infection [Unknown]
  - Feeding disorder [Unknown]
  - Weight increased [Unknown]
  - Cardiac arrest [Fatal]
  - Congestive cardiomyopathy [Not Recovered/Not Resolved]
  - Dyspnoea [Unknown]
  - Ejection fraction decreased [Not Recovered/Not Resolved]

NARRATIVE: CASE EVENT DATE: 202004
